FAERS Safety Report 12676842 (Version 4)
Quarter: 2016Q4

REPORT INFORMATION
  Report Type: Spontaneous
  Country: US (occurrence: US)
  Receive Date: 20160823
  Receipt Date: 20161130
  Transmission Date: 20170207
  Serious: Yes (Hospitalization)
  Sender: FDA-Public Use
  Company Number: US-TAIHO ONCOLOGY INC-EU-2016-02063

PATIENT
  Age: 74 Year
  Sex: Female

DRUGS (2)
  1. LONSURF [Suspect]
     Active Substance: TIPIRACIL HYDROCHLORIDE\TRIFLURIDINE
     Indication: COLON CANCER
     Route: 048
     Dates: start: 20160426, end: 2016
  2. VANCOMYCIN [Concomitant]
     Active Substance: VANCOMYCIN
     Dosage: NI

REACTIONS (7)
  - Inappropriate schedule of drug administration [Unknown]
  - Fatigue [Recovered/Resolved]
  - Nausea [Unknown]
  - Alopecia [Recovering/Resolving]
  - Vomiting [Unknown]
  - Hypophagia [Unknown]
  - Blood count abnormal [Recovered/Resolved]

NARRATIVE: CASE EVENT DATE: 2016
